FAERS Safety Report 6733936-7 (Version None)
Quarter: 2010Q2

REPORT INFORMATION
  Report Type: 
  Country: None (occurrence: None)
  Receive Date: 20100520
  Receipt Date: 20100511
  Transmission Date: 20101027
  Serious: Yes (Other)
  Sender: FDA-Public Use
  Company Number: JP-ROCHE-703412

PATIENT
  Age: 75 Year
  Sex: Female

DRUGS (6)
  1. AVASTIN [Suspect]
     Indication: LARGE INTESTINE CARCINOMA
     Dosage: NOTE: DOSAGE IS UNCERTAIN.
     Route: 041
  2. XELODA [Suspect]
     Indication: LARGE INTESTINE CARCINOMA
     Dosage: NOTE: DOSAGE IS UNCERTAIN.
     Route: 048
     Dates: start: 20091101
  3. ELPLAT [Concomitant]
     Dosage: NOTE: DOSAGE IS UNCERTAIN.
     Route: 041
  4. PARIET [Concomitant]
     Dosage: NOTE: DOSAGE IS UNCERTAIN.
     Route: 048
  5. MAGLAX [Concomitant]
     Dosage: DOSE FORM: PERORAL AGENT. NOTE: DOSAGE IS UNCERTAIN.
     Route: 048
  6. VITAMEDIN [Concomitant]
     Dosage: DOSE FORM: PERORAL AGENT, NOTE: DOSAGE IS UNCERTAIN.
     Route: 048

REACTIONS (3)
  - BONE MARROW FAILURE [None]
  - CONJUNCTIVITIS [None]
  - DIPLOPIA [None]
